FAERS Safety Report 9960205 (Version 2)
Quarter: 2014Q1

REPORT INFORMATION
  Report Type: Report from Study
  Country: US (occurrence: US)
  Receive Date: 20140305
  Receipt Date: 20140305
  Transmission Date: 20141002
  Serious: No
  Sender: FDA-Public Use
  Company Number: US-ABBVIE-12P-163-1023562-00

PATIENT
  Age: 22 Year
  Sex: Female

DRUGS (8)
  1. HUMIRA [Suspect]
     Indication: CROHN^S DISEASE
     Route: 058
     Dates: start: 20121120
  2. PREDNISONE [Concomitant]
     Indication: PRODUCT USED FOR UNKNOWN INDICATION
     Dosage: WEANING DOWN
  3. PREDNISONE [Concomitant]
     Dosage: WEANING DOWN
  4. PENTASA [Concomitant]
     Indication: CROHN^S DISEASE
  5. NORTRIPTYLINE [Concomitant]
     Indication: PAIN
  6. LEVOFLOXACIN [Concomitant]
     Indication: URINARY TRACT INFECTION
     Dosage: 500 MG DAILY
  7. CYMBALTA [Concomitant]
     Indication: PAIN
     Dosage: 30 MG DAILY
  8. ANTIBIOTICS [Concomitant]
     Indication: PRODUCT USED FOR UNKNOWN INDICATION

REACTIONS (24)
  - Asthenia [Not Recovered/Not Resolved]
  - Hypoaesthesia [Not Recovered/Not Resolved]
  - Paraesthesia [Not Recovered/Not Resolved]
  - Musculoskeletal stiffness [Not Recovered/Not Resolved]
  - Dizziness [Not Recovered/Not Resolved]
  - Feeling abnormal [Not Recovered/Not Resolved]
  - Nausea [Not Recovered/Not Resolved]
  - Dysuria [Not Recovered/Not Resolved]
  - Dysuria [Not Recovered/Not Resolved]
  - Asthenia [Not Recovered/Not Resolved]
  - Arthralgia [Not Recovered/Not Resolved]
  - Diarrhoea [Not Recovered/Not Resolved]
  - Headache [Not Recovered/Not Resolved]
  - Toothache [Not Recovered/Not Resolved]
  - Sensitivity of teeth [Not Recovered/Not Resolved]
  - Injection site pain [Not Recovered/Not Resolved]
  - Lymphadenopathy [Unknown]
  - Hypersensitivity [Unknown]
  - Device malfunction [Unknown]
  - Abdominal pain upper [Unknown]
  - Abdominal pain upper [Unknown]
  - Joint stiffness [Unknown]
  - Fatigue [Unknown]
  - Dysphonia [Unknown]
